FAERS Safety Report 7919481-1 (Version None)
Quarter: 2011Q4

REPORT INFORMATION
  Report Type: 
  Country: None (occurrence: None)
  Receive Date: 20111115
  Receipt Date: 20111103
  Transmission Date: 20120403
  Serious: Yes (Death, Life-Threatening, Hospitalization)
  Sender: FDA-Public Use
  Company Number: 126091

PATIENT
  Age: 61 Year
  Sex: Female

DRUGS (1)
  1. HALOPERIDOL LACTATE [Suspect]
     Indication: SCHIZOPHRENIA
     Dosage: 20MG

REACTIONS (15)
  - SEPTIC SHOCK [None]
  - RHABDOMYOLYSIS [None]
  - RENAL FAILURE [None]
  - CIRCULATORY COLLAPSE [None]
  - TACHYPNOEA [None]
  - HYPOTENSION [None]
  - SEROTONIN SYNDROME [None]
  - HEART RATE IRREGULAR [None]
  - PERIPHERAL COLDNESS [None]
  - NEUROLEPTIC MALIGNANT SYNDROME [None]
  - DEPRESSED LEVEL OF CONSCIOUSNESS [None]
  - ABDOMINAL DISTENSION [None]
  - FALL [None]
  - LIVEDO RETICULARIS [None]
  - LEUKOCYTOSIS [None]
